FAERS Safety Report 5081816-8 (Version None)
Quarter: 2006Q3

REPORT INFORMATION
  Report Type: 
  Country: None (occurrence: None)
  Receive Date: 20060816
  Receipt Date: 20060731
  Transmission Date: 20061208
  Serious: Yes (Death)
  Sender: FDA-Public Use
  Company Number: BD-GLAXOSMITHKLINE-B0434158A

PATIENT
  Age: 57 Year
  Sex: Male

DRUGS (2)
  1. ALBENDAZOLE [Suspect]
     Route: 048
     Dates: start: 20060424, end: 20060424
  2. DIETHYLCARBAMAZINE CITRATE [Concomitant]
     Route: 048
     Dates: start: 20060424, end: 20060424

REACTIONS (1)
  - MYOCARDIAL INFARCTION [None]
